FAERS Safety Report 22730626 (Version 3)
Quarter: 2023Q4

REPORT INFORMATION
  Report Type: Spontaneous
  Country: US (occurrence: US)
  Receive Date: 20230720
  Receipt Date: 20231022
  Transmission Date: 20240110
  Serious: Yes (Other)
  Sender: FDA-Public Use
  Company Number: US-JNJFOC-20230726102

PATIENT
  Sex: Female

DRUGS (1)
  1. DARZALEX FASPRO [Suspect]
     Active Substance: DARATUMUMAB\HYALURONIDASE-FIHJ
     Indication: Product used for unknown indication
     Route: 065

REACTIONS (10)
  - Neuropathy peripheral [Unknown]
  - White blood cell disorder [Unknown]
  - Platelet count abnormal [Unknown]
  - Asthenia [Unknown]
  - Anaemia [Unknown]
  - Loss of personal independence in daily activities [Unknown]
  - Laryngitis [Unknown]
  - Rhinorrhoea [Unknown]
  - Allergy to chemicals [Unknown]
  - Peripheral swelling [Unknown]
